FAERS Safety Report 25001595 (Version 3)
Quarter: 2025Q4

REPORT INFORMATION
  Report Type: Report from Study
  Country: KR (occurrence: KR)
  Receive Date: 20250223
  Receipt Date: 20251205
  Transmission Date: 20260117
  Serious: Yes (Death, Hospitalization)
  Sender: ABBVIE
  Company Number: KR-ABBVIE-6146611

PATIENT
  Age: 68 Year
  Sex: Female
  Weight: 43 kg

DRUGS (20)
  1. VENCLEXTA [Suspect]
     Active Substance: VENETOCLAX
     Indication: Chronic lymphocytic leukaemia
     Dosage: 20 MILLIGRAM
     Route: 048
     Dates: start: 20241119, end: 20241125
  2. BANAN [Concomitant]
     Active Substance: CEFPODOXIME PROXETIL
     Indication: Pneumonia
     Route: 048
     Dates: start: 20241126, end: 20241201
  3. Mucosta sr [Concomitant]
     Indication: Prophylaxis
     Route: 048
     Dates: start: 20241119, end: 20241206
  4. JANUVIA [Concomitant]
     Active Substance: SITAGLIPTIN PHOSPHATE
     Indication: Diabetes mellitus
     Route: 048
     Dates: start: 20241205, end: 20241211
  5. Solondo [Concomitant]
     Indication: Infection prophylaxis
     Route: 048
     Dates: start: 20241119, end: 20241225
  6. Solondo [Concomitant]
     Indication: Infection prophylaxis
     Route: 048
     Dates: start: 20241126, end: 20241206
  7. Dongsung erdosteine [Concomitant]
     Indication: Pneumonia
     Dosage: 900 CAPSULE
     Route: 048
     Dates: start: 20241126, end: 20241213
  8. METOCLOPRAMIDE HYDROCHLORIDE [Concomitant]
     Active Substance: METOCLOPRAMIDE HYDROCHLORIDE
     Indication: Prophylaxis of nausea and vomiting
     Route: 042
     Dates: start: 20241210, end: 20241210
  9. NEUPOGEN [Concomitant]
     Active Substance: FILGRASTIM
     Indication: Neutrophil count decreased
     Dosage: 300 MICROGRAM
     Route: 058
     Dates: start: 20241202, end: 20241202
  10. METFORMIN HYDROCHLORIDE [Concomitant]
     Active Substance: METFORMIN HYDROCHLORIDE
     Indication: Diabetes mellitus
     Route: 048
     Dates: start: 20241205, end: 20241211
  11. Ganakhan [Concomitant]
     Indication: Prophylaxis
     Route: 048
     Dates: start: 20241212, end: 20241213
  12. LEVODROPROPIZINE [Concomitant]
     Active Substance: LEVODROPROPIZINE
     Indication: Pneumonia
     Route: 048
     Dates: start: 20241126, end: 20241213
  13. Entelon [Concomitant]
     Indication: Pulmonary embolism
     Route: 048
     Dates: start: 20241119, end: 20241213
  14. HUMULIN R [Concomitant]
     Active Substance: INSULIN HUMAN
     Indication: Diabetes mellitus
     Route: 042
     Dates: start: 20241204, end: 20241205
  15. HUMULIN R [Concomitant]
     Active Substance: INSULIN HUMAN
     Indication: Diabetes mellitus
     Route: 042
     Dates: start: 20241205, end: 20241210
  16. AUGMENTIN [Concomitant]
     Active Substance: AMOXICILLIN\CLAVULANATE POTASSIUM
     Indication: Infection prophylaxis
     Route: 048
     Dates: start: 20241108, end: 20241125
  17. LIVALO [Concomitant]
     Active Substance: PITAVASTATIN CALCIUM
     Indication: Diabetes mellitus
     Route: 048
     Dates: start: 20241205, end: 20241213
  18. LEVOFLOXACIN [Concomitant]
     Active Substance: LEVOFLOXACIN
     Indication: Infection prophylaxis
     Route: 048
     Dates: start: 20241108, end: 20241125
  19. EDOXABAN TOSYLATE [Concomitant]
     Active Substance: EDOXABAN TOSYLATE
     Indication: Pulmonary embolism
     Route: 048
     Dates: start: 20241119, end: 20241213
  20. Moroxacin [Concomitant]
     Indication: Pneumonia
     Route: 048
     Dates: start: 20241126, end: 20241201

REACTIONS (1)
  - Pneumonia fungal [Fatal]

NARRATIVE: CASE EVENT DATE: 20241204
